FAERS Safety Report 10273491 (Version 2)
Quarter: 2014Q3

REPORT INFORMATION
  Report Type: Spontaneous
  Country: DE (occurrence: None)
  Receive Date: 20140630
  Receipt Date: 20140703
  Transmission Date: 20150326
  Serious: Yes (Other)
  Sender: FDA-Public Use
  Company Number: AUR-APL-2014-06864

PATIENT
  Age: 32 Year
  Sex: Female
  Weight: 70 kg

DRUGS (2)
  1. FOLIO (FOLIC ACID, POTASSIUM IODIDE) [Concomitant]
  2. QUETIAPINE [Suspect]
     Active Substance: QUETIAPINE
     Indication: SCHIZOPHRENIA
     Dosage: 400 MG/D, ORAL
     Route: 048
     Dates: start: 20130514, end: 2013

REACTIONS (2)
  - Gestational diabetes [None]
  - Exposure during pregnancy [None]
